FAERS Safety Report 25263618 (Version 1)
Quarter: 2025Q2

REPORT INFORMATION
  Report Type: Spontaneous
  Country: US (occurrence: None)
  Receive Date: 20250501
  Receipt Date: 20250501
  Transmission Date: 20250717
  Serious: Yes (unspecified)
  Sender: FDA-CTU
  Company Number: None

PATIENT
  Age: 76 Year
  Sex: Male
  Weight: 81 kg

DRUGS (4)
  1. LANTUS [Suspect]
     Active Substance: INSULIN GLARGINE
     Indication: Diabetes mellitus
  2. PLAVIX [Concomitant]
     Active Substance: CLOPIDOGREL BISULFATE
  3. INSULIN NOS [Concomitant]
     Active Substance: INSULIN NOS
  4. Picnoginal [Concomitant]

REACTIONS (4)
  - Blood glucose decreased [None]
  - Retinopathy [None]
  - Blindness unilateral [None]
  - Product substitution issue [None]

NARRATIVE: CASE EVENT DATE: 19980420
